FAERS Safety Report 6272106-6 (Version None)
Quarter: 2009Q3

REPORT INFORMATION
  Report Type: 
  Country: None (occurrence: None)
  Receive Date: 20090717
  Receipt Date: 20090710
  Transmission Date: 20100115
  Serious: Yes (Hospitalization)
  Sender: FDA-Public Use
  Company Number: B0583369A

PATIENT
  Sex: Male

DRUGS (3)
  1. REQUIP [Suspect]
     Indication: PARKINSON'S DISEASE
     Dosage: 16MG PER DAY
     Route: 048
  2. SINEMET [Suspect]
     Indication: PARKINSON'S DISEASE
     Dosage: 575MG PER DAY
     Route: 048
  3. ATACAND [Concomitant]
     Dosage: 4MG PER DAY
     Route: 048

REACTIONS (4)
  - DEPENDENCE [None]
  - DOPAMINE DYSREGULATION SYNDROME [None]
  - PATHOLOGICAL GAMBLING [None]
  - SLEEP DISORDER [None]
